FAERS Safety Report 9021925 (Version 1)
Quarter: 2013Q1

REPORT INFORMATION
  Report Type: Spontaneous
  Country: CA (occurrence: CA)
  Receive Date: 20130118
  Receipt Date: 20130118
  Transmission Date: 20140127
  Serious: Yes (Other)
  Sender: FDA-Public Use
  Company Number: CA-JNJFOC-20130104975

PATIENT
  Sex: Female

DRUGS (2)
  1. NICORETTE [Suspect]
     Indication: SMOKING CESSATION THERAPY
     Dosage: USED THE GUM LIBERALLY
     Route: 048
     Dates: start: 20090101
  2. UNKNOWN MEDICATION [Concomitant]
     Route: 065

REACTIONS (3)
  - Nicotine dependence [Not Recovered/Not Resolved]
  - Intentional drug misuse [Not Recovered/Not Resolved]
  - Hot flush [Unknown]
